FAERS Safety Report 8614036 (Version 3)
Quarter: 2013Q2

REPORT INFORMATION
  Report Type: Spontaneous
  Country: GB (occurrence: None)
  Receive Date: 20120531
  Receipt Date: 20130528
  Transmission Date: 20140414
  Serious: Yes (Hospitalization)
  Sender: FDA-Public Use
  Company Number: GB-022756

PATIENT
  Age: 80 Year
  Sex: Female
  Weight: 63.9 kg

DRUGS (2)
  1. CHLORAMBUCIL [Suspect]
     Indication: CHRONIC LYMPHOCYTIC LEUKAEMIA
     Dosage: 10MGM2 DAYS 1-7 EVERY 28 DAYS (10 MG/M2),ORAL
     Route: 048
     Dates: start: 20101021, end: 20110220
  2. OFATUMUMAB [Suspect]
     Indication: CHRONIC LYMPHOCYTIC LEUKAEMIA
     Dosage: AT DAY 1 (300 MILLIGRAM,UNKNOWN),INTRAVENOUS (NOT OTHERWISE SPECIFIED)
     Route: 042
     Dates: start: 20101021

REACTIONS (2)
  - Pneumonia [None]
  - Neutropenic sepsis [None]
